FAERS Safety Report 12456854 (Version 2)
Quarter: 2016Q2

REPORT INFORMATION
  Report Type: Report from Study
  Country: BY (occurrence: BY)
  Receive Date: 20160610
  Receipt Date: 20160615
  Transmission Date: 20160815
  Serious: Yes (Death, Other)
  Sender: FDA-Public Use
  Company Number: RU-AMGEN-RUSSP2016065420

PATIENT
  Age: 10 Year
  Weight: 23 kg

DRUGS (10)
  1. LINEZOLID. [Concomitant]
     Active Substance: LINEZOLID
  2. FEIBA [Concomitant]
     Active Substance: ANTI-INHIBITOR COAGULANT COMPLEX
     Indication: HAEMOSTASIS
  3. LEVOFLOXACIN. [Concomitant]
     Active Substance: LEVOFLOXACIN
  4. MEDROL [Concomitant]
     Active Substance: METHYLPREDNISOLONE
     Indication: ENGRAFTMENT SYNDROME
     Dosage: 5 MG/KG, QD
  5. COLISTIN [Concomitant]
     Active Substance: COLISTIN
  6. PREDNISOLON [Concomitant]
     Active Substance: PREDNISOLONE
     Dosage: 60 MG/M2, UNK
  7. MERONEM [Concomitant]
     Active Substance: MEROPENEM
  8. BLINATUMOMAB [Suspect]
     Active Substance: BLINATUMOMAB
     Indication: ACUTE LYMPHOCYTIC LEUKAEMIA
     Dosage: UNK
     Route: 065
     Dates: start: 20160516
  9. CEFTRIAXONE. [Concomitant]
     Active Substance: CEFTRIAXONE
  10. VIROLEX [Concomitant]
     Active Substance: ACYCLOVIR

REACTIONS (11)
  - Hypoxic-ischaemic encephalopathy [Unknown]
  - Pharyngeal haemorrhage [Unknown]
  - Epistaxis [Unknown]
  - Toxic encephalopathy [Unknown]
  - Pericardial effusion [Unknown]
  - Septic shock [Fatal]
  - Bronchopulmonary aspergillosis [Unknown]
  - Cytokine release syndrome [Unknown]
  - Cerebral ischaemia [Unknown]
  - Coma [Unknown]
  - Multiple organ dysfunction syndrome [Unknown]
